FAERS Safety Report 10135739 (Version 2)
Quarter: 2014Q2

REPORT INFORMATION
  Report Type: Report from Study
  Country: BR (occurrence: BR)
  Receive Date: 20140428
  Receipt Date: 20140524
  Transmission Date: 20141212
  Serious: Yes (Hospitalization, Other)
  Sender: FDA-Public Use
  Company Number: PHHY2014BR050846

PATIENT
  Age: 43 Year
  Sex: Male
  Weight: 92 kg

DRUGS (2)
  1. DIOVAN AMLO FIX [Suspect]
     Indication: HYPERTENSION
     Dosage: 1 DF DAILY
     Route: 048
  2. DIOVAN AMLO FIX [Suspect]
     Dosage: 2 DF (150/5 MG) DAILY
     Dates: start: 20140419

REACTIONS (2)
  - Infarction [Recovering/Resolving]
  - Vascular occlusion [Recovering/Resolving]
